FAERS Safety Report 17536076 (Version 1)
Quarter: 2020Q1

REPORT INFORMATION
  Report Type: Spontaneous
  Country: ES (occurrence: ES)
  Receive Date: 20200313
  Receipt Date: 20200313
  Transmission Date: 20200409
  Serious: Yes (Other)
  Sender: FDA-Public Use
  Company Number: ES-PRINSTON PHARMACEUTICAL INC.-2020PRN00077

PATIENT
  Age: 49 Year
  Sex: Male

DRUGS (6)
  1. DAUNORRUBICIN [Concomitant]
     Dosage: 45 MG/M2 (ON DAYS 1, 8, 15, AND 22)
     Route: 065
  2. VORICONAZOLE. [Suspect]
     Active Substance: VORICONAZOLE
     Indication: ANTIFUNGAL PROPHYLAXIS
     Dosage: 200 MG, 2X/DAY
     Route: 065
  3. POSACONAZOLE [Suspect]
     Active Substance: POSACONAZOLE
     Indication: ANTIFUNGAL PROPHYLAXIS
     Dosage: 300 MG, 1X/DAY
     Route: 065
  4. IMATINIB. [Concomitant]
     Active Substance: IMATINIB MESYLATE
     Dosage: 600 MG, 1X/DAY
     Route: 065
  5. VINCRISTINE [Suspect]
     Active Substance: VINCRISTINE
     Indication: ACUTE LYMPHOCYTIC LEUKAEMIA
     Dosage: 1.16 MG/M2 (ON DAYS 1, 8, 15, AND 22)
     Route: 065
  6. METHYLPREDNISOLONE. [Concomitant]
     Active Substance: METHYLPREDNISOLONE
     Dosage: 60 MG/M2 (ON DAYS 1, 8, 15, AND 22)
     Route: 042

REACTIONS (5)
  - Inappropriate antidiuretic hormone secretion [Recovered/Resolved]
  - Toxicity to various agents [Unknown]
  - Ileus paralytic [Unknown]
  - Drug interaction [Recovered/Resolved]
  - Enteritis [Unknown]
